FAERS Safety Report 11433283 (Version 2)
Quarter: 2015Q4

REPORT INFORMATION
  Report Type: Report from Study
  Country: BR (occurrence: BR)
  Receive Date: 20150830
  Receipt Date: 20151113
  Transmission Date: 20160304
  Serious: Yes (Death)
  Sender: FDA-Public Use
  Company Number: BR-B.I. PHARMACEUTICALS,INC./RIDGEFIELD-2015-BI-45833BR

PATIENT
  Age: 83 Year
  Sex: Female
  Weight: 92 kg

DRUGS (7)
  1. RANITIDINE [Concomitant]
     Active Substance: RANITIDINE\RANITIDINE HYDROCHLORIDE
     Indication: ABDOMINAL DISCOMFORT
     Dosage: 300 MG
     Route: 048
     Dates: start: 2009, end: 20150510
  2. EPINEPHRINA [Concomitant]
     Indication: ARRHYTHMIA
     Dosage: 40 MG
     Route: 048
     Dates: start: 2009, end: 20150510
  3. AAS [Concomitant]
     Active Substance: ASPIRIN
     Indication: CARDIOVASCULAR DISORDER
     Dosage: INFANTILE
     Route: 048
     Dates: start: 2009, end: 20150510
  4. METFORMIN [Concomitant]
     Active Substance: METFORMIN HYDROCHLORIDE
     Indication: DIABETES MELLITUS
     Dosage: 2550 MG
     Route: 048
     Dates: start: 2009, end: 20150510
  5. TRADJENTA [Suspect]
     Active Substance: LINAGLIPTIN
     Indication: PRODUCT USED FOR UNKNOWN INDICATION
     Dosage: 5 MG
     Route: 048
     Dates: start: 201503, end: 20150510
  6. CAPTOPRIL. [Concomitant]
     Active Substance: CAPTOPRIL
     Indication: HYPERTENSION
     Dosage: 75 MG
     Route: 048
     Dates: start: 2009, end: 20150510
  7. METILDOPA [Concomitant]
     Active Substance: METHYLDOPA
     Indication: ARRHYTHMIA
     Dosage: 500 MG
     Route: 048
     Dates: start: 2009, end: 20150510

REACTIONS (2)
  - Cerebrovascular accident [Fatal]
  - Feeling abnormal [Unknown]

NARRATIVE: CASE EVENT DATE: 20150510
